FAERS Safety Report 24173565 (Version 1)
Quarter: 2024Q3

REPORT INFORMATION
  Report Type: Spontaneous
  Country: US (occurrence: None)
  Receive Date: 20240805
  Receipt Date: 20240805
  Transmission Date: 20241016
  Serious: No
  Sender: Public
  Company Number: None

PATIENT
  Age: 60 Year
  Sex: Male
  Weight: 146.96 kg

DRUGS (17)
  1. INSULIN LISPRO [Suspect]
     Active Substance: INSULIN LISPRO
     Indication: Product used for unknown indication
     Dosage: 15 WITH  BE...MEAL  4 TIMES A DAY INJECTION ??GIVE BEST ESTIMATE DURATION?1-15UNIT
  2. LANTUS [Concomitant]
     Active Substance: INSULIN GLARGINE
  3. METOPROLOL TARTRATE [Concomitant]
     Active Substance: METOPROLOL TARTRATE
  4. FERROUS SULFATE [Concomitant]
     Active Substance: FERROUS SULFATE
  5. VITAMIN D3 [Concomitant]
     Active Substance: CHOLECALCIFEROL
  6. LISINOPRIL [Concomitant]
     Active Substance: LISINOPRIL
  7. omeprazole dr. [Concomitant]
  8. super beets- blood pressure support, propiant (xxx shake, muslce defen [Concomitant]
  9. organic just barley [Concomitant]
  10. balance of nature-veggies/fruits [Concomitant]
  11. xxxxx ofkidney wel culctotel (LC balancer, ks, xeel, [Concomitant]
  12. formula c [Concomitant]
  13. breez [Concomitant]
  14. sea moss [Concomitant]
  15. black seed oil [Concomitant]
  16. BURDOCK ROOT [Concomitant]
  17. leon^s mane powder [Concomitant]

REACTIONS (3)
  - Joint swelling [None]
  - Peripheral swelling [None]
  - Product substitution issue [None]

NARRATIVE: CASE EVENT DATE: 20240619
